FAERS Safety Report 25181608 (Version 1)
Quarter: 2025Q2

REPORT INFORMATION
  Report Type: Report from Study
  Country: US (occurrence: US)
  Receive Date: 20250410
  Receipt Date: 20250410
  Transmission Date: 20250716
  Serious: Yes (Death, Other)
  Sender: ACADIA PHARMACEUTICALS
  Company Number: US-ACADIA PHARMACEUTICALS INC.-ACA-2025-PIM-003775

PATIENT
  Sex: Female

DRUGS (9)
  1. NUPLAZID [Suspect]
     Active Substance: PIMAVANSERIN TARTRATE
     Indication: Parkinson^s disease
     Dosage: 34 MILLIGRAM, QD
     Route: 048
     Dates: start: 20230123
  2. COLCHICINE [Concomitant]
     Active Substance: COLCHICINE
  3. DULOXETINE [Concomitant]
     Active Substance: DULOXETINE
  4. LATANOPROST [Concomitant]
     Active Substance: LATANOPROST
  5. RYTARY [Concomitant]
     Active Substance: CARBIDOPA\LEVODOPA
  6. TRAMADOL [Concomitant]
     Active Substance: TRAMADOL
  7. RASAGILINE [Concomitant]
     Active Substance: RASAGILINE
  8. MINERALS\VITAMINS [Concomitant]
     Active Substance: MINERALS\VITAMINS
  9. GABAPENTIN [Concomitant]
     Active Substance: GABAPENTIN

REACTIONS (4)
  - Cerebrovascular accident [Fatal]
  - Parkinson^s disease [Fatal]
  - Monoplegia [Recovered/Resolved]
  - Diplegia [Recovered/Resolved]
